FAERS Safety Report 5338632-9 (Version None)
Quarter: 2007Q2

REPORT INFORMATION
  Report Type: 
  Country: None (occurrence: None)
  Receive Date: 20070322
  Receipt Date: 20060323
  Transmission Date: 20071010
  Serious: Yes (Hospitalization)
  Sender: FDA-Public Use
  Company Number: 200611283BCC

PATIENT
  Age: 15 Year
  Sex: Female
  Weight: 45.3597 kg

DRUGS (2)
  1. ALEVE [Suspect]
     Indication: DRUG USE FOR UNKNOWN INDICATION
     Dosage: 2420 MG, ONCE, ORAL
     Route: 048
     Dates: start: 20060322
  2. LEXAPRO [Concomitant]

REACTIONS (2)
  - FATIGUE [None]
  - VOMITING [None]
